FAERS Safety Report 20250054 (Version 1)
Quarter: 2021Q4

REPORT INFORMATION
  Report Type: Spontaneous
  Country: US (occurrence: US)
  Receive Date: 20211229
  Receipt Date: 20211229
  Transmission Date: 20220304
  Serious: Yes (Disabling, Other)
  Sender: FDA-Public Use
  Company Number: US-PURDUE-USA-2020-0216245

PATIENT
  Sex: Male

DRUGS (1)
  1. OXYCONTIN [Suspect]
     Active Substance: OXYCODONE HYDROCHLORIDE
     Indication: Road traffic accident
     Dosage: UNK
     Route: 048
     Dates: start: 2005

REACTIONS (4)
  - Drug dependence [Unknown]
  - Anxiety [Unknown]
  - Impaired work ability [Unknown]
  - Emotional distress [Unknown]
